FAERS Safety Report 6770695-6 (Version None)
Quarter: 2010Q2

REPORT INFORMATION
  Report Type: 
  Country: None (occurrence: None)
  Receive Date: 20100615
  Receipt Date: 20100608
  Transmission Date: 20101027
  Serious: Yes (Other)
  Sender: FDA-Public Use
  Company Number: PHHO2010US08825

PATIENT
  Sex: Male
  Weight: 91.6 kg

DRUGS (4)
  1. BLINDED BHQ880 BHQ+ [Suspect]
     Indication: MULTIPLE MYELOMA
     Dosage: DOUBLE BLIND
     Route: 042
     Dates: start: 20090930, end: 20100511
  2. BLINDED NO TREATMENT RECEIVED NOMED [Suspect]
     Indication: MULTIPLE MYELOMA
     Dosage: DOUBLE BLIND
     Route: 042
     Dates: start: 20090930, end: 20100511
  3. BLINDED PLACEBO COMP-PLA+ [Suspect]
     Indication: MULTIPLE MYELOMA
     Dosage: DOUBLE BLIND
     Route: 042
     Dates: start: 20090930, end: 20100511
  4. ZOLEDRONIC ACID [Suspect]
     Indication: MULTIPLE MYELOMA
     Dosage: 4 MG
     Route: 042
     Dates: start: 20090530, end: 20100511

REACTIONS (2)
  - OSTEONECROSIS OF JAW [None]
  - PRIMARY SEQUESTRUM [None]
